FAERS Safety Report 7400648-6 (Version None)
Quarter: 2011Q2

REPORT INFORMATION
  Report Type: 
  Country: None (occurrence: None)
  Receive Date: 20110407
  Receipt Date: 20110325
  Transmission Date: 20111010
  Serious: Yes (Other)
  Sender: FDA-Public Use
  Company Number: PHHY2011DE25465

PATIENT
  Age: 73 Year
  Sex: Male

DRUGS (4)
  1. PREDNISOLONE [Suspect]
     Indication: RHEUMATOID ARTHRITIS
     Dosage: 20 MG/DAY
     Route: 048
  2. PREDNISOLONE [Suspect]
     Dosage: 40 MG/DAY
     Route: 048
  3. METHOTREXATE [Suspect]
     Indication: RHEUMATOID ARTHRITIS
  4. CYCLOPHOSPHAMIDE [Suspect]
     Indication: RHEUMATOID ARTHRITIS
     Dosage: 1 G, UNK
     Route: 042

REACTIONS (9)
  - LUNG INFILTRATION [None]
  - OEDEMA PERIPHERAL [None]
  - HERPES ZOSTER [None]
  - SKIN LESION [None]
  - SKIN NECROSIS [None]
  - PNEUMONIA [None]
  - BLISTER [None]
  - SKIN EROSION [None]
  - LEUKOCYTOCLASTIC VASCULITIS [None]
